FAERS Safety Report 26148665 (Version 1)
Quarter: 2025Q4

REPORT INFORMATION
  Report Type: Spontaneous
  Country: US (occurrence: US)
  Receive Date: 20251212
  Receipt Date: 20251212
  Transmission Date: 20260117
  Serious: No
  Sender: PHARMACOSMOS A/S
  Company Number: US-NEBO-714949

PATIENT
  Sex: Male

DRUGS (2)
  1. MONOFERRIC [Suspect]
     Active Substance: FERRIC DERISOMALTOSE
     Indication: Product used for unknown indication
     Dates: start: 20251125, end: 20251125
  2. MONOFERRIC [Suspect]
     Active Substance: FERRIC DERISOMALTOSE
     Indication: Product used for unknown indication
     Dates: start: 20251125, end: 20251125

REACTIONS (4)
  - Diarrhoea [Unknown]
  - Vomiting [Unknown]
  - Feeling cold [Unknown]
  - Hypotension [Unknown]

NARRATIVE: CASE EVENT DATE: 20251125
